FAERS Safety Report 10944159 (Version 1)
Quarter: 2015Q1

REPORT INFORMATION
  Report Type: Spontaneous
  Country: FR (occurrence: FR)
  Receive Date: 20150323
  Receipt Date: 20150323
  Transmission Date: 20150721
  Serious: Yes (Hospitalization)
  Sender: FDA-Public Use
  Company Number: FR-ACCORD-029419

PATIENT
  Age: 67 Year
  Sex: Male

DRUGS (3)
  1. GEMCITABINE ACCORD [Suspect]
     Active Substance: GEMCITABINE HYDROCHLORIDE
     Indication: NEOPLASM MALIGNANT
     Dosage: 1 IN 1 COURSE
     Route: 042
     Dates: start: 20140919, end: 20141128
  2. CARBOPLATIN FRESENIUS [Suspect]
     Active Substance: CARBOPLATIN
     Indication: NEOPLASM MALIGNANT
     Dosage: DOSE: 5 AUC CALCULATED ACCORDING TO CHATELUT^S FORMULA
     Route: 042
     Dates: start: 20141121, end: 20141121
  3. STAGID [Concomitant]
     Active Substance: METFORMIN PAMOATE
     Route: 048

REACTIONS (1)
  - Rhabdomyolysis [Recovering/Resolving]

NARRATIVE: CASE EVENT DATE: 20141207
